FAERS Safety Report 9578915 (Version 1)
Quarter: 2013Q4

REPORT INFORMATION
  Report Type: Spontaneous
  Country: US (occurrence: US)
  Receive Date: 20131001
  Receipt Date: 20131001
  Transmission Date: 20140711
  Serious: No
  Sender: FDA-Public Use
  Company Number: US-AMGEN-USASP2013015358

PATIENT
  Age: 48 Year
  Sex: Female
  Weight: 122.45 kg

DRUGS (12)
  1. ENBREL [Suspect]
     Indication: PRODUCT USED FOR UNKNOWN INDICATION
     Dosage: 50 MG, 2 TIMES/WK
     Route: 058
  2. VOLTAREN-XR [Concomitant]
     Dosage: 100 MG, UNK
  3. METFORMIN [Concomitant]
     Dosage: 750 MG, UNK,ER
  4. HYDROCHLOROTHIAZIDE W/TRIAMTERENE [Concomitant]
     Dosage: 25-50 MG,
  5. VITAMIN D                          /00107901/ [Concomitant]
     Dosage: 50000 UNIT, UNK
  6. BIOTIN [Concomitant]
     Dosage: 5000 UNK, UNK
  7. MELATONIN [Concomitant]
     Dosage: 10 MG, UNK
  8. BABY ASPIRIN [Concomitant]
     Dosage: 81 MG, UNK
  9. CLONAZEPAM [Concomitant]
     Dosage: UNK
  10. MECLIZINE                          /00072801/ [Concomitant]
     Dosage: 25 MG, UNK
  11. ALIGN [Concomitant]
     Dosage: 4 MG, UNK
  12. NUVIGIL [Concomitant]
     Dosage: 150 MG, UNK

REACTIONS (5)
  - Decreased appetite [Unknown]
  - Injection site warmth [Recovered/Resolved]
  - Injection site erythema [Recovered/Resolved]
  - Injection site swelling [Recovered/Resolved]
  - Influenza [Recovered/Resolved]
